FAERS Safety Report 6994685-3 (Version None)
Quarter: 2010Q3

REPORT INFORMATION
  Report Type: 
  Country: None (occurrence: None)
  Receive Date: 20100915
  Receipt Date: 20100831
  Transmission Date: 20110219
  Serious: Yes (Death, Hospitalization)
  Sender: FDA-Public Use
  Company Number: 2010AC000502

PATIENT
  Age: 63 Year
  Sex: Female

DRUGS (12)
  1. DIGOXIN [Suspect]
     Indication: PRODUCT USED FOR UNKNOWN INDICATION
     Dosage: PO
     Route: 048
     Dates: start: 19900701
  2. DIGOXIN [Suspect]
     Indication: PRODUCT USED FOR UNKNOWN INDICATION
     Dosage: 0.125 MG;QD;PO
     Route: 048
     Dates: start: 20080701
  3. CIPRO [Concomitant]
  4. CALCIUM [Concomitant]
  5. VITAMIN D [Concomitant]
  6. ASPIRIN [Concomitant]
  7. SOTALOL HYDROCHLORIDE [Concomitant]
  8. LASIX [Concomitant]
  9. QUINAPRIL [Concomitant]
  10. SYNTHROID [Concomitant]
  11. DILANTIN [Concomitant]
  12. LEVAQUIN [Concomitant]

REACTIONS (48)
  - ABDOMINAL DISTENSION [None]
  - ANAEMIA [None]
  - ANXIETY [None]
  - ASTHENIA [None]
  - ATRIAL FIBRILLATION [None]
  - AUTOIMMUNE DISORDER [None]
  - BUNDLE BRANCH BLOCK RIGHT [None]
  - CARDIAC FAILURE CONGESTIVE [None]
  - CARDIOMEGALY [None]
  - CONTUSION [None]
  - CONVULSION [None]
  - DECREASED APPETITE [None]
  - DILATATION VENTRICULAR [None]
  - DIZZINESS POSTURAL [None]
  - DRY SKIN [None]
  - FACIAL BONES FRACTURE [None]
  - FATIGUE [None]
  - GASTROINTESTINAL HAEMORRHAGE [None]
  - HAEMORRHAGE [None]
  - HEPATIC CIRRHOSIS [None]
  - HEPATITIS C [None]
  - HYPOVOLAEMIA [None]
  - INCONTINENCE [None]
  - INCORRECT DOSE ADMINISTERED [None]
  - LEFT ATRIAL DILATATION [None]
  - LUNG NEOPLASM [None]
  - MENTAL STATUS CHANGES [None]
  - MITRAL VALVE INCOMPETENCE [None]
  - MITRAL VALVE STENOSIS [None]
  - MUSCULAR WEAKNESS [None]
  - NAUSEA [None]
  - OEDEMA PERIPHERAL [None]
  - PAIN [None]
  - PALPITATIONS [None]
  - PETECHIAE [None]
  - PNEUMONIA [None]
  - PNEUMOTHORAX [None]
  - PORTAL HYPERTENSION [None]
  - PULMONARY ARTERIAL HYPERTENSION [None]
  - PULMONARY HYPERTENSION [None]
  - PYREXIA [None]
  - SOMNOLENCE [None]
  - STRESS [None]
  - TEMPERATURE INTOLERANCE [None]
  - THROMBOCYTOPENIA [None]
  - TRICUSPID VALVE INCOMPETENCE [None]
  - VISION BLURRED [None]
  - WEIGHT DECREASED [None]
